FAERS Safety Report 8216650-0 (Version None)
Quarter: 2012Q1

REPORT INFORMATION
  Report Type: 
  Country: None (occurrence: None)
  Receive Date: 20120316
  Receipt Date: 20120315
  Transmission Date: 20120608
  Serious: Yes (Other)
  Sender: FDA-Public Use
  Company Number: US-MEDIMMUNE-MEDI-0014451

PATIENT
  Sex: Male

DRUGS (4)
  1. ZIDOVUDINE [Concomitant]
  2. SYNAGIS [Suspect]
     Dates: start: 20120110, end: 20120110
  3. EPIVIR [Concomitant]
  4. KALETRA [Concomitant]

REACTIONS (1)
  - CONVULSION [None]
